FAERS Safety Report 9815939 (Version 1)
Quarter: 2014Q1

REPORT INFORMATION
  Report Type: Spontaneous
  Country: US (occurrence: US)
  Receive Date: 20140114
  Receipt Date: 20140114
  Transmission Date: 20141002
  Serious: No
  Sender: FDA-Public Use
  Company Number: US-BAYER-2014-005830

PATIENT
  Age: 87 Year
  Sex: Female
  Weight: 49.43 kg

DRUGS (11)
  1. ALEVE TABLET [Suspect]
     Indication: ANALGESIC THERAPY
     Dosage: 4 DF, QD
     Route: 048
     Dates: start: 20140104
  2. DIOVAN [Concomitant]
     Dosage: UNK
  3. POTASSIUM CHLORIDE [Concomitant]
     Dosage: UNK
  4. NORVASC [Concomitant]
     Dosage: UNK
  5. LORAZEPAM [Concomitant]
     Dosage: UNK
  6. PREMARIN [ESTROGENS CONJUGATED] [Concomitant]
     Dosage: UNK
  7. CALCIUM [Concomitant]
     Dosage: UNK
  8. CENTRUM SILVER [Concomitant]
     Dosage: UNK
  9. ZINC [Concomitant]
     Dosage: UNK
  10. LIPITOR [Concomitant]
     Dosage: UNK
  11. TOPROL [Concomitant]
     Dosage: UNK

REACTIONS (1)
  - Extra dose administered [None]
